FAERS Safety Report 5483611-4 (Version None)
Quarter: 2007Q4

REPORT INFORMATION
  Report Type: 
  Country: None (occurrence: None)
  Receive Date: 20071009
  Receipt Date: 20070926
  Transmission Date: 20080405
  Serious: Yes (Death)
  Sender: FDA-Public Use
  Company Number: S07-USA-02683-01

PATIENT
  Age: 58 Year
  Sex: Female

DRUGS (5)
  1. LEXAPRO [Suspect]
     Indication: ANXIETY
     Dosage: 10 MG QD PO
     Route: 048
     Dates: start: 20060927, end: 20061001
  2. LEXAPRO [Suspect]
     Indication: DEPRESSION
     Dosage: 10 MG QD PO
     Route: 048
     Dates: start: 20060927, end: 20061001
  3. NEURONTIN [Concomitant]
  4. TENORMIN [Concomitant]
  5. ASPIRIN [Concomitant]

REACTIONS (4)
  - ARRHYTHMIA [None]
  - CARDIOTOXICITY [None]
  - MYOCARDIAL INFARCTION [None]
  - SUDDEN DEATH [None]
